FAERS Safety Report 23738838 (Version 1)
Quarter: 2024Q2

REPORT INFORMATION
  Report Type: Spontaneous
  Country: US (occurrence: US)
  Receive Date: 20240413
  Receipt Date: 20240413
  Transmission Date: 20240716
  Serious: No
  Sender: FDA-Public Use
  Company Number: US-ABBVIE-5715871

PATIENT

DRUGS (1)
  1. LATISSE [Suspect]
     Active Substance: BIMATOPROST
     Indication: Product used for unknown indication
     Dosage: STRENGTH: 0.3MG/ML
     Route: 050

REACTIONS (3)
  - Swelling of eyelid [Unknown]
  - Eyelid irritation [Unknown]
  - Erythema of eyelid [Unknown]
